FAERS Safety Report 7505310-7 (Version None)
Quarter: 2011Q2

REPORT INFORMATION
  Report Type: 
  Country: None (occurrence: None)
  Receive Date: 20110519
  Receipt Date: 20110511
  Transmission Date: 20111010
  Serious: Yes (Other)
  Sender: FDA-Public Use
  Company Number: 2010BI035654

PATIENT
  Age: 67 Year
  Sex: Female

DRUGS (1)
  1. ZEVALIN [Suspect]
     Indication: FOLLICLE CENTRE LYMPHOMA, FOLLICULAR GRADE I, II, III
     Dosage: 1X;IV
     Route: 042
     Dates: start: 20100824, end: 20100824

REACTIONS (1)
  - BONE MARROW FAILURE [None]
